FAERS Safety Report 14068516 (Version 1)
Quarter: 2017Q4

REPORT INFORMATION
  Report Type: Spontaneous
  Country: AF (occurrence: AF)
  Receive Date: 20171010
  Receipt Date: 20171010
  Transmission Date: 20180321
  Serious: Yes (Other)
  Sender: FDA-Public Use
  Company Number: None

PATIENT
  Age: 61 Year
  Sex: Female
  Weight: 165 kg

DRUGS (3)
  1. EZETIMIBE. [Suspect]
     Active Substance: EZETIMIBE
     Indication: BLOOD CHOLESTEROL INCREASED
     Dosage: ?          QUANTITY:.5 TABLET(S);?
     Route: 048
     Dates: start: 20170927, end: 20171008
  2. CENTRUM VITAMINS LIQUID [Concomitant]
     Active Substance: VITAMINS
  3. ARMOUR THYROID [Concomitant]
     Active Substance: THYROID, PORCINE

REACTIONS (13)
  - Headache [None]
  - Feeling abnormal [None]
  - Muscle contractions involuntary [None]
  - Panic attack [None]
  - Fear [None]
  - Mental status changes [None]
  - Oropharyngeal pain [None]
  - Impaired driving ability [None]
  - Adverse drug reaction [None]
  - Impaired work ability [None]
  - Loss of personal independence in daily activities [None]
  - Drug intolerance [None]
  - Immobile [None]

NARRATIVE: CASE EVENT DATE: 20171008
